FAERS Safety Report 6325876-2 (Version None)
Quarter: 2009Q3

REPORT INFORMATION
  Report Type: 
  Country: None (occurrence: None)
  Receive Date: 20090824
  Receipt Date: 20090811
  Transmission Date: 20100115
  Serious: Yes (Hospitalization, Disabling)
  Sender: FDA-Public Use
  Company Number: US-MERCK-0905USA04162

PATIENT
  Age: 63 Year
  Sex: Female
  Weight: 63 kg

DRUGS (2)
  1. FOSAMAX [Suspect]
     Indication: OSTEOPENIA
     Route: 048
     Dates: start: 20010801, end: 20020801
  2. FOSAMAX [Suspect]
     Route: 048
     Dates: start: 20020801, end: 20070705

REACTIONS (11)
  - ANAEMIA POSTOPERATIVE [None]
  - CHEST PAIN [None]
  - DEHYDRATION [None]
  - FEMUR FRACTURE [None]
  - LACERATION [None]
  - OSTEOARTHRITIS [None]
  - OSTEOPOROSIS [None]
  - PNEUMONIA [None]
  - SKIN LACERATION [None]
  - STRESS FRACTURE [None]
  - UTERINE LEIOMYOMA [None]
